FAERS Safety Report 4622375-0 (Version None)
Quarter: 2005Q1

REPORT INFORMATION
  Report Type: 
  Country: None (occurrence: None)
  Receive Date: 20050328
  Receipt Date: 20050314
  Transmission Date: 20050727
  Serious: Yes (Death, Hospitalization)
  Sender: FDA-Public Use
  Company Number: 2003164819NL

PATIENT
  Age: 59 Year
  Sex: Female
  Weight: 51 kg

DRUGS (2)
  1. EXEMESTANE [Suspect]
     Indication: BREAST CANCER
     Dosage: 25 MG (25 MG, DAILY),  ORAL
     Route: 048
     Dates: start: 20000626, end: 20030625
  2. AMITRYPTYLINE (AMITRIPTYLINE) [Concomitant]

REACTIONS (5)
  - COUGH [None]
  - METASTASES TO THE MEDIASTINUM [None]
  - NON-SMALL CELL LUNG CANCER [None]
  - SUBCLAVIAN VEIN THROMBOSIS [None]
  - SUPERIOR VENA CAVAL OCCLUSION [None]
